FAERS Safety Report 19821817 (Version 3)
Quarter: 2021Q4

REPORT INFORMATION
  Report Type: Spontaneous
  Country: US (occurrence: US)
  Receive Date: 20210913
  Receipt Date: 20211021
  Transmission Date: 20220303
  Serious: Yes (Death, Other)
  Sender: FDA-Public Use
  Company Number: US-CELGENE-USA-20210901198

PATIENT
  Age: 75 Year
  Sex: Male
  Weight: 118.04 kg

DRUGS (1)
  1. POMALYST [Suspect]
     Active Substance: POMALIDOMIDE
     Indication: Plasma cell myeloma
     Dosage: 4 MILLIGRAM
     Route: 048
     Dates: start: 201408

REACTIONS (5)
  - Pancreatic carcinoma [Fatal]
  - Neuropathy peripheral [Unknown]
  - Laboratory test abnormal [Unknown]
  - Thyroid disorder [Unknown]
  - Hypertension [Unknown]

NARRATIVE: CASE EVENT DATE: 20210901
